FAERS Safety Report 4297644-7 (Version None)
Quarter: 2004Q1

REPORT INFORMATION
  Report Type: 
  Country: None (occurrence: None)
  Receive Date: 20040217
  Receipt Date: 20040217
  Transmission Date: 20041129
  Serious: Yes (Death)
  Sender: FDA-Public Use
  Company Number: None

PATIENT
  Age: 78 Year
  Sex: Female
  Weight: 84.4 kg

DRUGS (4)
  1. MYLOTARG [Suspect]
     Indication: ACUTE MYELOID LEUKAEMIA
     Dosage: 18 MG OVER 2 HRS INTRAVENOUS
     Route: 042
     Dates: start: 20031224, end: 20031224
  2. DILAUDID [Concomitant]
  3. DILTIAZEM [Concomitant]
  4. SENOKOT [Concomitant]

REACTIONS (3)
  - BIOPSY BONE MARROW ABNORMAL [None]
  - DISEASE PROGRESSION [None]
  - DRUG INEFFECTIVE [None]
